FAERS Safety Report 6268411-X (Version None)
Quarter: 2009Q3

REPORT INFORMATION
  Report Type: 
  Country: None (occurrence: None)
  Receive Date: 20090715
  Receipt Date: 20090702
  Transmission Date: 20100115
  Serious: Yes (Other)
  Sender: FDA-Public Use
  Company Number: PHHY2009CA16324

PATIENT
  Sex: Male

DRUGS (6)
  1. EXJADE [Suspect]
     Indication: IRON OVERLOAD
     Dosage: 750 MG, UNK
     Route: 048
     Dates: start: 20090401, end: 20090626
  2. EXJADE [Suspect]
     Indication: MYELODYSPLASTIC SYNDROME
  3. LIPITOR [Concomitant]
  4. PREDNISOLONE [Concomitant]
  5. ALLOPURINOL [Concomitant]
  6. PRISTIQ [Concomitant]

REACTIONS (5)
  - ABDOMINAL DISCOMFORT [None]
  - BLOOD GLUCOSE DECREASED [None]
  - DEPRESSION [None]
  - DIARRHOEA [None]
  - FATIGUE [None]
